FAERS Safety Report 8990916 (Version 5)
Quarter: 2014Q1

REPORT INFORMATION
  Report Type: Report from Study
  Country: CA (occurrence: CA)
  Receive Date: 20121231
  Receipt Date: 20140221
  Transmission Date: 20141002
  Serious: Yes (Disabling, Other)
  Sender: FDA-Public Use
  Company Number: PHHY2012CA120973

PATIENT
  Age: 70 Year
  Sex: Female

DRUGS (3)
  1. TASIGNA [Suspect]
     Indication: CHRONIC MYELOID LEUKAEMIA
     Dosage: 400 MG, BID
     Route: 048
     Dates: start: 20080701
  2. PREDNISONE [Concomitant]
  3. BABY ASPIRIN [Concomitant]

REACTIONS (6)
  - Balance disorder [Not Recovered/Not Resolved]
  - Pneumonia [Unknown]
  - Dizziness [Unknown]
  - Visual impairment [Unknown]
  - Muscular weakness [Unknown]
  - Dyspepsia [Unknown]
